FAERS Safety Report 4913877-8 (Version None)
Quarter: 2006Q1

REPORT INFORMATION
  Report Type: 
  Country: None (occurrence: None)
  Receive Date: 20060216
  Receipt Date: 20051013
  Transmission Date: 20060701
  Serious: Yes (Hospitalization, Other)
  Sender: FDA-Public Use
  Company Number: US-MERCK-0510USA07409

PATIENT
  Age: 66 Year
  Sex: Male
  Weight: 68 kg

DRUGS (2)
  1. VIOXX [Suspect]
     Indication: ARTHRALGIA
     Route: 048
     Dates: start: 19990101, end: 20000401
  2. CELEBREX [Concomitant]
     Indication: BACK PAIN
     Route: 065
     Dates: start: 19980101, end: 20030101

REACTIONS (17)
  - ARTERIOSCLEROSIS [None]
  - BLOOD DISORDER [None]
  - BLOOD PRESSURE SYSTOLIC DECREASED [None]
  - BRADYCARDIA [None]
  - CAROTID ARTERY STENOSIS [None]
  - CORONARY ARTERY DISEASE [None]
  - DYSPNOEA [None]
  - FATIGUE [None]
  - HYPERLIPIDAEMIA [None]
  - ISCHAEMIC CARDIOMYOPATHY [None]
  - MITRAL VALVE INCOMPETENCE [None]
  - MYOCARDIAL INFARCTION [None]
  - MYOCARDIAL ISCHAEMIA [None]
  - PLEURAL RUB [None]
  - PNEUMOTHORAX [None]
  - POSTOPERATIVE FEVER [None]
  - SUBCLAVIAN ARTERY STENOSIS [None]
